FAERS Safety Report 8927070 (Version 1)
Quarter: 2012Q4

REPORT INFORMATION
  Report Type: 
  Country: CO (occurrence: CO)
  Receive Date: 20121127
  Receipt Date: 20121127
  Transmission Date: 20130627
  Serious: Yes (Other)
  Sender: FDA-Public Use
  Company Number: CO-PFIZER INC-2012296181

PATIENT
  Age: 63 Year
  Sex: Male

DRUGS (6)
  1. LYRICA [Suspect]
     Indication: DIABETIC POLYNEUROPATHY
     Dosage: UNK
     Route: 048
     Dates: start: 201201, end: 201209
  2. ALDACTONE [Suspect]
     Dosage: UNK
  3. ATORVASTATIN CALCIUM [Suspect]
     Dosage: UNK
  4. FENOFIBRATE [Suspect]
  5. SITAGLIPTIN [Suspect]
  6. METFORMIN HYDROCHLORIDE [Suspect]

REACTIONS (8)
  - Proteinuria [Unknown]
  - Extrapyramidal disorder [Recovered/Resolved]
  - Hypothyroidism [Unknown]
  - Pain in extremity [Unknown]
  - Gait disturbance [Unknown]
  - Arthralgia [Unknown]
  - Pain [Unknown]
  - Polymedication [Unknown]
